FAERS Safety Report 6511610-X (Version None)
Quarter: 2009Q4

REPORT INFORMATION
  Report Type: 
  Country: None (occurrence: None)
  Receive Date: 20091222
  Receipt Date: 20090428
  Transmission Date: 20100525
  Serious: No
  Sender: FDA-Public Use
  Company Number: US-ASTRAZENECA-2009UW10611

PATIENT
  Sex: Female
  Weight: 87.5 kg

DRUGS (1)
  1. CRESTOR [Suspect]
     Dosage: 20 (UNIT UNSPECIFIED) DAILY
     Route: 048

REACTIONS (1)
  - PAIN IN EXTREMITY [None]
